FAERS Safety Report 7404531-1 (Version None)
Quarter: 2011Q2

REPORT INFORMATION
  Report Type: 
  Country: None (occurrence: None)
  Receive Date: 20110410
  Receipt Date: 20110406
  Transmission Date: 20111010
  Serious: Yes (Hospitalization)
  Sender: FDA-Public Use
  Company Number: US-BRISTOL-MYERS SQUIBB COMPANY-15608532

PATIENT
  Age: 73 Year
  Sex: Male
  Weight: 69 kg

DRUGS (16)
  1. DECADRON [Concomitant]
     Route: 065
     Dates: start: 20110301
  2. DILAUDID [Concomitant]
     Route: 065
     Dates: start: 20110225
  3. LEXAPRO [Concomitant]
     Route: 065
     Dates: start: 20090318
  4. ALOXI [Concomitant]
     Route: 065
     Dates: start: 20110301
  5. ZOFRAN [Concomitant]
     Route: 065
     Dates: start: 20110301
  6. FLUOROURACIL [Suspect]
     Indication: HEAD AND NECK CANCER
     Dosage: 6MAR11 WITHDRAWN FROM STUDY
     Route: 042
     Dates: start: 20110301, end: 20110304
  7. ARAVA [Concomitant]
     Route: 065
     Dates: start: 20090508
  8. CETUXIMAB [Suspect]
     Indication: HEAD AND NECK CANCER
     Dosage: 6MAR11 WITHDRAWN FROM STUDY
     Dates: start: 20110301, end: 20110301
  9. PREDNISONE [Concomitant]
     Route: 065
     Dates: start: 20090508
  10. GRANISETRON HCL [Concomitant]
     Route: 062
     Dates: start: 20110301
  11. COUMADIN [Concomitant]
     Route: 065
     Dates: start: 20100624
  12. COMPAZINE [Concomitant]
     Route: 065
     Dates: start: 20110301
  13. CISPLATIN [Suspect]
     Indication: HEAD AND NECK CANCER
     Dosage: 6MAR11 WITHDRAWN FROM STUDY
     Route: 042
     Dates: start: 20110301, end: 20110301
  14. BENADRYL [Concomitant]
     Route: 065
     Dates: start: 20110301
  15. ZANTAC [Concomitant]
     Route: 065
     Dates: start: 20110301
  16. FOLIC ACID [Concomitant]
     Route: 065
     Dates: start: 20080527

REACTIONS (2)
  - RESPIRATORY DISTRESS [None]
  - HYPOXIA [None]
